FAERS Safety Report 7751024-8 (Version None)
Quarter: 2011Q3

REPORT INFORMATION
  Report Type: 
  Country: None (occurrence: None)
  Receive Date: 20110912
  Receipt Date: 20110831
  Transmission Date: 20111222
  Serious: Yes (Hospitalization)
  Sender: FDA-Public Use
  Company Number: US-001954

PATIENT
  Sex: Male
  Weight: 14 kg

DRUGS (1)
  1. NAGLAZYME [Suspect]
     Indication: MUCOPOLYSACCHARIDOSIS VI
     Dosage: 1 MG/KG 1X/WEEK INTRAVENOUS DRIP
     Dates: start: 20090911

REACTIONS (5)
  - FALL [None]
  - ABASIA [None]
  - JOINT INJURY [None]
  - ARTHRALGIA [None]
  - PAIN [None]
